FAERS Safety Report 6817441-5 (Version None)
Quarter: 2010Q3

REPORT INFORMATION
  Report Type: 
  Country: None (occurrence: None)
  Receive Date: 20100706
  Receipt Date: 20100630
  Transmission Date: 20110219
  Serious: Yes (Congenital Anomaly)
  Sender: FDA-Public Use
  Company Number: A0868257A

PATIENT

DRUGS (10)
  1. EPIVIR [Suspect]
     Indication: HIV INFECTION
  2. ZIAGEN [Suspect]
     Indication: HIV INFECTION
  3. LEXIVA [Suspect]
     Indication: HIV INFECTION
  4. ZERIT [Suspect]
     Indication: HIV INFECTION
  5. SUSTIVA [Suspect]
     Indication: HIV INFECTION
  6. VIDEX [Suspect]
     Indication: HIV INFECTION
  7. FORTOVASE [Suspect]
     Indication: HIV INFECTION
  8. VIREAD [Suspect]
     Indication: HIV INFECTION
  9. KALETRA [Suspect]
     Indication: HIV INFECTION
  10. NORVIR [Suspect]
     Indication: HIV INFECTION

REACTIONS (2)
  - DRUG EXPOSURE DURING PREGNANCY [None]
  - PLAGIOCEPHALY [None]
